FAERS Safety Report 8287891-1 (Version None)
Quarter: 2012Q2

REPORT INFORMATION
  Report Type: 
  Country: None (occurrence: None)
  Receive Date: 20120416
  Receipt Date: 20120413
  Transmission Date: 20120825
  Serious: Yes (Life-Threatening, Hospitalization)
  Sender: FDA-Public Use
  Company Number: US-ROCHE-785114

PATIENT
  Sex: Male
  Weight: 55.3 kg

DRUGS (10)
  1. PACLITAXEL [Suspect]
     Indication: NON-SMALL CELL LUNG CANCER
     Route: 042
     Dates: start: 20101122, end: 20110124
  2. FOLIC ACID [Concomitant]
     Indication: ANAEMIA
  3. BENAZEPRIL HYDROCHLORIDE [Concomitant]
     Indication: HYPERTENSION
  4. PROMETHAZINE [Concomitant]
     Indication: PROPHYLAXIS OF NAUSEA AND VOMITING
  5. AVASTIN [Suspect]
     Indication: NON-SMALL CELL LUNG CANCER
     Route: 042
     Dates: start: 20101122, end: 20110124
  6. NEXIUM [Concomitant]
     Indication: ABDOMINAL DISCOMFORT
  7. SUCRALFATE [Concomitant]
     Indication: GASTRIC ULCER
  8. PERCOCET [Concomitant]
     Indication: MUSCULOSKELETAL CHEST PAIN
  9. AVASTIN [Suspect]
     Dosage: FREQUENCY: DAY 1 OF EVERY 21 DAYS LAST DOSE PRIOR TO SAE: 17 MARCH 2011
     Route: 042
     Dates: start: 20110224, end: 20110317
  10. CARBOPLATIN [Suspect]
     Indication: NON-SMALL CELL LUNG CANCER
     Dosage: DOSE: 6 AUC
     Route: 042
     Dates: start: 20101122, end: 20110124

REACTIONS (7)
  - NEPHROTIC SYNDROME [None]
  - LACUNAR INFARCTION [None]
  - GENERAL PHYSICAL HEALTH DETERIORATION [None]
  - DEEP VEIN THROMBOSIS [None]
  - NEOPLASM PROGRESSION [None]
  - PULMONARY EMBOLISM [None]
  - NON-SMALL CELL LUNG CANCER [None]
